FAERS Safety Report 13953264 (Version 1)
Quarter: 2017Q3

REPORT INFORMATION
  Report Type: Spontaneous
  Country: US (occurrence: None)
  Receive Date: 20170908
  Receipt Date: 20170908
  Transmission Date: 20171128
  Serious: No
  Sender: FDA-Public Use
  Company Number: None

PATIENT
  Sex: Female

DRUGS (1)
  1. HUMIRA [Suspect]
     Active Substance: ADALIMUMAB
     Indication: PRODUCT USED FOR UNKNOWN INDICATION
     Dosage: 40MG EVERY OTHER WEEK SQ
     Route: 058
     Dates: start: 20170724, end: 20170906

REACTIONS (9)
  - Decreased appetite [None]
  - Kidney infection [None]
  - Cystitis [None]
  - Peripheral swelling [None]
  - Fungal infection [None]
  - Headache [None]
  - Weight decreased [None]
  - Skin ulcer [None]
  - Fatigue [None]
